FAERS Safety Report 5799146-5 (Version None)
Quarter: 2008Q3

REPORT INFORMATION
  Report Type: 
  Country: None (occurrence: None)
  Receive Date: 20080701
  Receipt Date: 20080619
  Transmission Date: 20090109
  Serious: Yes (Other)
  Sender: FDA-Public Use
  Company Number: 235873J08USA

PATIENT
  Age: 33 Year
  Sex: Female

DRUGS (3)
  1. REBIF [Suspect]
     Indication: MULTIPLE SCLEROSIS
     Dates: start: 20080123, end: 20080507
  2. PREDNISONE [Concomitant]
  3. NICOTINE [Concomitant]

REACTIONS (6)
  - ACNE [None]
  - ANTIPHOSPHOLIPID SYNDROME [None]
  - ANXIETY [None]
  - CHEST PAIN [None]
  - SJOGREN'S SYNDROME [None]
  - URTICARIA [None]
